FAERS Safety Report 9036850 (Version 1)
Quarter: 2012Q4

REPORT INFORMATION
  Report Type: Spontaneous
  Country: US (occurrence: None)
  Receive Date: 20121206
  Receipt Date: 20121206
  Transmission Date: 20130627
  Serious: Yes (Death)
  Sender: FDA-Public Use
  Company Number: 2012034156

PATIENT
  Sex: Male
  Weight: 74.84 kg

DRUGS (1)
  1. CARIMUNE [Suspect]
     Indication: HYPOGAMMAGLOBULINAEMIA

REACTIONS (1)
  - Death [None]
